FAERS Safety Report 6050517-1 (Version None)
Quarter: 2009Q1

REPORT INFORMATION
  Report Type: 
  Country: None (occurrence: None)
  Receive Date: 20090126
  Receipt Date: 20090120
  Transmission Date: 20090719
  Serious: Yes (Hospitalization)
  Sender: FDA-Public Use
  Company Number: PHEH2009US00987

PATIENT

DRUGS (3)
  1. TEKTURNA [Suspect]
     Dosage: 150 UNK, UNK
  2. LASIX [Concomitant]
  3. LOTREL [Concomitant]
     Dosage: 10/40 UNK, UNK

REACTIONS (3)
  - CATHETERISATION CARDIAC [None]
  - PULMONARY OEDEMA [None]
  - RENAL ARTERY STENOSIS [None]
